FAERS Safety Report 19237671 (Version 1)
Quarter: 2021Q2

REPORT INFORMATION
  Report Type: Spontaneous
  Country: US (occurrence: US)
  Receive Date: 20210510
  Receipt Date: 20210510
  Transmission Date: 20210717
  Serious: Yes (Other)
  Sender: FDA-Public Use
  Company Number: US-MALLINCKRODT PHARMACEUTICALS-T202102001

PATIENT
  Age: 8 Month
  Sex: Female

DRUGS (4)
  1. EPOPROSTENOL. [Suspect]
     Active Substance: EPOPROSTENOL
     Indication: PULMONARY HYPERTENSION
     Dosage: HIGH AS 50NG/KG/HR
     Route: 065
  2. SILDENAFIL. [Suspect]
     Active Substance: SILDENAFIL
     Indication: PULMONARY HYPERTENSION
     Dosage: UNK
     Route: 065
  3. BOSENTAN. [Suspect]
     Active Substance: BOSENTAN
     Indication: PULMONARY HYPERTENSION
     Dosage: UNK
     Route: 065
  4. INOMAX [Suspect]
     Active Substance: NITRIC OXIDE
     Indication: PULMONARY HYPERTENSION
     Dosage: 40 PPM PER INHALATION
     Route: 055

REACTIONS (6)
  - Laryngeal stenosis [Unknown]
  - Product use issue [Unknown]
  - Drug ineffective [Unknown]
  - Respiratory failure [Unknown]
  - Cardio-respiratory arrest [Unknown]
  - Condition aggravated [Unknown]
